FAERS Safety Report 4886824-5 (Version None)
Quarter: 2006Q1

REPORT INFORMATION
  Report Type: 
  Country: None (occurrence: None)
  Receive Date: 20060119
  Receipt Date: 20060119
  Transmission Date: 20060701
  Serious: Yes (Hospitalization)
  Sender: FDA-Public Use
  Company Number: None

PATIENT
  Age: 82 Year
  Sex: Male
  Weight: 123.4 kg

DRUGS (12)
  1. ACTOS [Suspect]
  2. OMEPRAZOLE [Concomitant]
  3. SIMVASTATIN [Concomitant]
  4. TERAZOSIN HCL [Concomitant]
  5. TRAMADOL HCL [Concomitant]
  6. FUROSEMIDE [Concomitant]
  7. INSULIN NOVOLIN 70/30 (NPH/REG) [Concomitant]
  8. ETODOLAC [Concomitant]
  9. LISINOPRIL [Concomitant]
  10. MONTELUKAST NA [Concomitant]
  11. FLUNISOLIDE [Concomitant]
  12. GLYBURIDE [Concomitant]

REACTIONS (1)
  - OEDEMA [None]
